FAERS Safety Report 17325459 (Version 1)
Quarter: 2020Q1

REPORT INFORMATION
  Report Type: Spontaneous
  Country: DE (occurrence: DE)
  Receive Date: 20200127
  Receipt Date: 20200127
  Transmission Date: 20200409
  Serious: Yes (Life-Threatening)
  Sender: FDA-Public Use
  Company Number: DE-MYLANLABS-2020M1008451

PATIENT
  Age: 63 Year
  Sex: Male

DRUGS (1)
  1. CANDESARTAN/HYDROCHLOROTHIAZIDE [Suspect]
     Active Substance: CANDESARTAN CILEXETIL\HYDROCHLOROTHIAZIDE
     Indication: HYPERTENSION
     Dosage: DAILY DOSE: 2 DF DOSAGE FORM EVERY DAYS 2 SEPARATED DOSES
     Route: 048
     Dates: start: 20190726, end: 20191007

REACTIONS (4)
  - Fatigue [Not Recovered/Not Resolved]
  - Gamma-glutamyltransferase increased [Not Recovered/Not Resolved]
  - C-reactive protein increased [Not Recovered/Not Resolved]
  - Abdominal pain [Not Recovered/Not Resolved]

NARRATIVE: CASE EVENT DATE: 20190729
